FAERS Safety Report 10922275 (Version 2)
Quarter: 2015Q1

REPORT INFORMATION
  Report Type: Spontaneous
  Country: JP (occurrence: JP)
  Receive Date: 20150317
  Receipt Date: 20150320
  Transmission Date: 20150721
  Serious: Yes (Other)
  Sender: FDA-Public Use
  Company Number: JP-JNJFOC-20150216083

PATIENT
  Age: 9 Decade
  Sex: Male

DRUGS (10)
  1. TRAMCET [Suspect]
     Active Substance: ACETAMINOPHEN\TRAMADOL
     Indication: BACK PAIN
     Route: 048
  2. VESICARE [Concomitant]
     Active Substance: SOLIFENACIN SUCCINATE
     Route: 048
  3. OPALMON [Concomitant]
     Active Substance: LIMAPROST
     Route: 048
  4. MUCODYNE [Concomitant]
     Active Substance: CARBOCYSTEINE
     Route: 048
  5. ALESION [Concomitant]
     Active Substance: EPINASTINE HYDROCHLORIDE
     Route: 065
  6. FUROSEMIDE. [Concomitant]
     Active Substance: FUROSEMIDE
     Route: 065
  7. TRAMCET [Suspect]
     Active Substance: ACETAMINOPHEN\TRAMADOL
     Indication: BACK PAIN
     Route: 048
     Dates: start: 20130918
  8. OMEPRAL [Concomitant]
     Active Substance: OMEPRAZOLE
     Route: 065
  9. AMLODIN [Concomitant]
     Active Substance: AMLODIPINE BESYLATE
     Route: 048
  10. METHYCOBAL [Concomitant]
     Active Substance: METHYLCOBALAMIN
     Route: 048

REACTIONS (16)
  - Hallucination, auditory [Unknown]
  - Hallucination [Unknown]
  - Dysstasia [Unknown]
  - Aphasia [Unknown]
  - Asthenia [Unknown]
  - Gait disturbance [Unknown]
  - Confusional state [Unknown]
  - Surgery [Unknown]
  - Dizziness [Unknown]
  - Delirium [Unknown]
  - Altered state of consciousness [Unknown]
  - Nausea [Unknown]
  - Delusion [Unknown]
  - Speech disorder [Unknown]
  - Restlessness [Unknown]
  - Incontinence [Unknown]

NARRATIVE: CASE EVENT DATE: 20130919
